FAERS Safety Report 6520668-3 (Version None)
Quarter: 2009Q4

REPORT INFORMATION
  Report Type: 
  Country: None (occurrence: None)
  Receive Date: 20091229
  Receipt Date: 20091221
  Transmission Date: 20100525
  Serious: Yes (Life-Threatening, Hospitalization, Disabling, Other)
  Sender: FDA-Public Use
  Company Number: FR-TEVA-218932ISR

PATIENT
  Sex: Male
  Weight: 78 kg

DRUGS (8)
  1. FLUOROURACIL [Suspect]
     Route: 040
     Dates: start: 20050603, end: 20050604
  2. FLUOROURACIL [Suspect]
     Route: 041
     Dates: start: 20050603, end: 20050605
  3. FOLINIC ACID [Suspect]
     Dates: start: 20050603, end: 20050604
  4. PARACETAMOL [Concomitant]
  5. METHYLPREDNISOLONE SODIUM SUCCINATE [Concomitant]
  6. ONDANSETRON HYDROCHLORIDE [Concomitant]
  7. SMECTITE [Concomitant]
     Dosage: 1 TO 3 DF DAILY
  8. WARFARIN SODIUM [Concomitant]

REACTIONS (2)
  - ATRIAL FLUTTER [None]
  - CEREBROVASCULAR ACCIDENT [None]
